FAERS Safety Report 6496390-9 (Version None)
Quarter: 2009Q4

REPORT INFORMATION
  Report Type: 
  Country: None (occurrence: None)
  Receive Date: 20091214
  Receipt Date: 20091201
  Transmission Date: 20100525
  Serious: Yes (Other)
  Sender: FDA-Public Use
  Company Number: CO-ELI_LILLY_AND_COMPANY-CO200912002902

PATIENT
  Age: 45 Year
  Sex: Female

DRUGS (1)
  1. BYETTA [Suspect]
     Indication: TYPE 2 DIABETES MELLITUS
     Dosage: 5 UG, 2/D
     Route: 058
     Dates: start: 20091123

REACTIONS (10)
  - DISCOMFORT [None]
  - DIZZINESS [None]
  - FATIGUE [None]
  - INFLUENZA [None]
  - MUSCULAR WEAKNESS [None]
  - NAUSEA [None]
  - OROPHARYNGEAL PAIN [None]
  - RHINORRHOEA [None]
  - SOMNOLENCE [None]
  - SYNCOPE [None]
